FAERS Safety Report 9405967 (Version 1)
Quarter: 2013Q3

REPORT INFORMATION
  Report Type: Spontaneous
  Country: CN (occurrence: CN)
  Receive Date: 20130717
  Receipt Date: 20130717
  Transmission Date: 20140515
  Serious: Yes (Other)
  Sender: FDA-Public Use
  Company Number: CN-GLAXOSMITHKLINE-B0908392A

PATIENT
  Age: 70 Year
  Sex: Male
  Weight: 71 kg

DRUGS (1)
  1. SEROXAT [Suspect]
     Indication: ANXIETY
     Dosage: 10MG PER DAY
     Route: 048
     Dates: start: 20120509, end: 20120529

REACTIONS (11)
  - Paralysis [Recovering/Resolving]
  - Palpitations [Recovering/Resolving]
  - Dry mouth [Recovering/Resolving]
  - Hyperhidrosis [Recovering/Resolving]
  - Mental disorder [Recovering/Resolving]
  - Abdominal distension [Recovering/Resolving]
  - Thirst [Recovering/Resolving]
  - Hypoaesthesia [Recovering/Resolving]
  - Flushing [Recovering/Resolving]
  - Anxiety [Recovering/Resolving]
  - Fear [Recovering/Resolving]
